FAERS Safety Report 14806404 (Version 2)
Quarter: 2018Q2

REPORT INFORMATION
  Report Type: Report from Study
  Country: CA (occurrence: CA)
  Receive Date: 20180425
  Receipt Date: 20180515
  Transmission Date: 20180711
  Serious: Yes (Hospitalization, Other)
  Sender: FDA-Public Use
  Company Number: PHHY2018CA036045

PATIENT
  Sex: Female

DRUGS (4)
  1. TYKERB [Suspect]
     Active Substance: LAPATINIB DITOSYLATE
     Indication: BREAST CANCER METASTATIC
     Dosage: 1250 MG, UNK
     Route: 048
     Dates: start: 20180225
  2. TYKERB [Suspect]
     Active Substance: LAPATINIB DITOSYLATE
     Dosage: UNK
     Route: 048
     Dates: start: 20180414
  3. XELODA [Suspect]
     Active Substance: CAPECITABINE
     Dosage: UNK
     Route: 065
     Dates: start: 20180414
  4. XELODA [Suspect]
     Active Substance: CAPECITABINE
     Indication: PRODUCT USED FOR UNKNOWN INDICATION
     Dosage: UNK
     Route: 065

REACTIONS (12)
  - Liver disorder [Unknown]
  - Hepatic enzyme decreased [Unknown]
  - Jaundice [Unknown]
  - Vulvovaginal discomfort [Unknown]
  - Diarrhoea [Unknown]
  - Bile duct obstruction [Unknown]
  - Pancreatic disorder [Unknown]
  - Malignant neoplasm progression [Unknown]
  - Chromaturia [Unknown]
  - Breast cancer metastatic [Unknown]
  - Flatulence [Unknown]
  - Gallbladder disorder [Unknown]
